FAERS Safety Report 15494456 (Version 1)
Quarter: 2018Q4

REPORT INFORMATION
  Report Type: Spontaneous
  Country: US (occurrence: US)
  Receive Date: 20181012
  Receipt Date: 20181012
  Transmission Date: 20190205
  Serious: No
  Sender: FDA-Public Use
  Company Number: None

PATIENT
  Age: 13 Year
  Sex: Male
  Weight: 58.5 kg

DRUGS (2)
  1. PRIVIGEN [Suspect]
     Active Substance: HUMAN IMMUNOGLOBULIN G
     Indication: IMMUNODEFICIENCY
     Dosage: ?          OTHER FREQUENCY:EVERY 3 WEEKS;?
     Route: 042
     Dates: start: 20180917, end: 20180917
  2. PRIVIGEN [Suspect]
     Active Substance: HUMAN IMMUNOGLOBULIN G
     Indication: IMMUNODEFICIENCY
     Dosage: ?          OTHER FREQUENCY:EVERY 3 WEEKS;?
     Route: 042
     Dates: start: 20180917, end: 20180917

REACTIONS (1)
  - Urticaria [None]

NARRATIVE: CASE EVENT DATE: 20181012
